FAERS Safety Report 22397301 (Version 4)
Quarter: 2024Q2

REPORT INFORMATION
  Report Type: Other
  Country: IN (occurrence: None)
  Receive Date: 20230602
  Receipt Date: 20240503
  Transmission Date: 20240715
  Serious: Yes (Other)
  Sender: FDA-Public Use
  Company Number: IN-ROCHE-3283338

PATIENT
  Age: 73 Year
  Sex: Male

DRUGS (2)
  1. TECENTRIQ [Suspect]
     Active Substance: ATEZOLIZUMAB
     Indication: Hepatocellular carcinoma
     Route: 042
     Dates: start: 20220827
  2. AVASTIN [Suspect]
     Active Substance: BEVACIZUMAB
     Indication: Hepatocellular carcinoma
     Route: 042
     Dates: start: 20220827

REACTIONS (6)
  - Pyrexia [Unknown]
  - Fungal infection [Unknown]
  - Skin disorder [Not Recovered/Not Resolved]
  - Skin toxicity [Unknown]
  - Disease progression [Unknown]
  - Off label use [Unknown]
